FAERS Safety Report 18363538 (Version 1)
Quarter: 2020Q4

REPORT INFORMATION
  Report Type: Spontaneous
  Country: US (occurrence: US)
  Receive Date: 20201008
  Receipt Date: 20201008
  Transmission Date: 20210114
  Serious: Yes (Other)
  Sender: FDA-Public Use
  Company Number: US-INCYTE CORPORATION-2020IN009791

PATIENT

DRUGS (1)
  1. JAKAFI [Suspect]
     Active Substance: RUXOLITINIB
     Indication: POLYCYTHAEMIA VERA
     Dosage: 15 MILLIGRAM (5MG TABLETS (2 TABS QAM, 1 TAB QPM 12 HOURS APART), QD
     Route: 048
     Dates: start: 20180605

REACTIONS (2)
  - Thrombosis [Unknown]
  - Speech disorder [Unknown]
